FAERS Safety Report 7481097-1 (Version None)
Quarter: 2011Q2

REPORT INFORMATION
  Report Type: 
  Country: None (occurrence: None)
  Receive Date: 20110516
  Receipt Date: 20100423
  Transmission Date: 20111010
  Serious: No
  Sender: FDA-Public Use
  Company Number: US-AMGEN-TCS408205

PATIENT
  Age: 2 Year
  Sex: Male

DRUGS (1)
  1. ENBREL [Suspect]
     Indication: JUVENILE ARTHRITIS
     Dosage: 7.5 MG, QWK
     Route: 058
     Dates: start: 20090722

REACTIONS (2)
  - POOR QUALITY SLEEP [None]
  - SLEEP TALKING [None]
